FAERS Safety Report 20186707 (Version 2)
Quarter: 2021Q4

REPORT INFORMATION
  Report Type: Spontaneous
  Country: US (occurrence: US)
  Receive Date: 20211215
  Receipt Date: 20211215
  Transmission Date: 20220304
  Serious: Yes (Hospitalization)
  Sender: FDA-Public Use
  Company Number: US-CELGENE-USA-20211202160

PATIENT
  Age: 68 Year
  Sex: Male
  Weight: 68.100 kg

DRUGS (1)
  1. REVLIMID [Suspect]
     Active Substance: LENALIDOMIDE
     Indication: Follicular lymphoma
     Dosage: 20 MILLIGRAM
     Route: 048
     Dates: start: 202108, end: 20211113

REACTIONS (2)
  - Embolism [Unknown]
  - Thrombosis [Unknown]

NARRATIVE: CASE EVENT DATE: 20211117
